FAERS Safety Report 10670487 (Version 1)
Quarter: 2014Q4

REPORT INFORMATION
  Report Type: Other
  Country: FR (occurrence: FR)
  Receive Date: 20141223
  Receipt Date: 20141223
  Transmission Date: 20150529
  Serious: Yes (Other)
  Sender: FDA-Public Use
  Company Number: FR-PURDUE PHARMA-GBR-2014-0024638

PATIENT
  Age: 13 Year
  Sex: Male

DRUGS (1)
  1. MORPHINE SULFATE. [Suspect]
     Active Substance: MORPHINE SULFATE
     Indication: JOINT INJURY
     Dosage: UNK
     Route: 048
     Dates: start: 20130627

REACTIONS (1)
  - Pancreatitis acute [Unknown]
